FAERS Safety Report 5800905-0 (Version None)
Quarter: 2008Q3

REPORT INFORMATION
  Report Type: 
  Country: None (occurrence: None)
  Receive Date: 20080701
  Receipt Date: 20080619
  Transmission Date: 20090109
  Serious: No
  Sender: FDA-Public Use
  Company Number: 08P-062-0459010-00

PATIENT
  Sex: Male

DRUGS (1)
  1. SYNAGIS [Suspect]
     Indication: PROPHYLAXIS
     Dosage: 100 MG TO 72 MG, EVERY 4 WEEKS (100 MG TO 72 MG, EVERY 4 WEEKS)
     Dates: start: 20071025, end: 20080417

REACTIONS (2)
  - LUNG INFECTION PSEUDOMONAL [None]
  - VOMITING [None]
